FAERS Safety Report 18777298 (Version 1)
Quarter: 2021Q1

REPORT INFORMATION
  Report Type: Spontaneous
  Country: CA (occurrence: CA)
  Receive Date: 20210122
  Receipt Date: 20210122
  Transmission Date: 20210419
  Serious: Yes (Other)
  Sender: FDA-Public Use
  Company Number: CA-PURDUE-USA-2020-0197585

PATIENT
  Sex: Female

DRUGS (1)
  1. OXYCONTIN [Suspect]
     Active Substance: OXYCODONE HYDROCHLORIDE
     Indication: PRODUCT USED FOR UNKNOWN INDICATION
     Dosage: UNK
     Route: 048

REACTIONS (8)
  - Visual impairment [Unknown]
  - Haemorrhage [Unknown]
  - Nerve injury [Unknown]
  - Laser therapy [Unknown]
  - Arterial bypass operation [Unknown]
  - Arteriosclerosis [Unknown]
  - Vascular graft [Unknown]
  - Drug dependence [Unknown]
